FAERS Safety Report 19774454 (Version 2)
Quarter: 2021Q3

REPORT INFORMATION
  Report Type: Report from Study
  Country: US (occurrence: US)
  Receive Date: 20210901
  Receipt Date: 20210929
  Transmission Date: 20211014
  Serious: No
  Sender: FDA-Public Use
  Company Number: NVSC2021US197449

PATIENT
  Sex: Female

DRUGS (1)
  1. KESIMPTA [Suspect]
     Active Substance: OFATUMUMAB
     Indication: RELAPSING MULTIPLE SCLEROSIS
     Dosage: UNK,BENEATH THE SKIN,USUALLY VIA INJECTION
     Route: 058
     Dates: start: 20210726

REACTIONS (9)
  - Pain [Unknown]
  - Neck pain [Unknown]
  - Cystitis [Unknown]
  - Ocular discomfort [Unknown]
  - Eye pain [Unknown]
  - Malaise [Unknown]
  - Hypoaesthesia [Unknown]
  - Fatigue [Unknown]
  - General physical condition [Unknown]
